FAERS Safety Report 23339664 (Version 3)
Quarter: 2024Q1

REPORT INFORMATION
  Report Type: Spontaneous
  Country: US (occurrence: US)
  Receive Date: 20231226
  Receipt Date: 20240208
  Transmission Date: 20240410
  Serious: No
  Sender: FDA-Public Use
  Company Number: US-PFIZER INC-202300444439

PATIENT
  Age: 63 Year
  Sex: Female
  Weight: 65.306 kg

DRUGS (9)
  1. PAXLOVID [Suspect]
     Active Substance: NIRMATRELVIR\RITONAVIR
     Indication: COVID-19
     Dosage: 300 MG NIRMATRELVIR AND 100 MG RITONAVIR, EVERY 12 HOURS FOR 5 DAYS
     Dates: start: 20231202, end: 20231206
  2. MULTIVITAMIN [ASCORBIC ACID;BIOTIN;CALCIUM;CHOLINE BITARTRATE;CHROMIUM [Concomitant]
     Dosage: UNK
     Dates: start: 20231202, end: 20231206
  3. MULTIVITAMIN [ASCORBIC ACID;BIOTIN;CALCIUM;CHOLINE BITARTRATE;CHROMIUM [Concomitant]
     Dosage: UNK
  4. FISH OIL [Concomitant]
     Active Substance: FISH OIL
     Dosage: UNK
     Dates: start: 20231202, end: 20231206
  5. FISH OIL [Concomitant]
     Active Substance: FISH OIL
     Dosage: UNK
  6. CALCIUM CITRATE\CHOLECALCIFEROL [Concomitant]
     Active Substance: CALCIUM CITRATE\CHOLECALCIFEROL
     Dosage: UNK
     Dates: start: 20231202, end: 20231206
  7. CALCIUM CITRATE\CHOLECALCIFEROL [Concomitant]
     Active Substance: CALCIUM CITRATE\CHOLECALCIFEROL
     Dosage: UNK
  8. CHONDROITIN PLUS GLUCOSAMIN [Concomitant]
     Dosage: UNK
     Dates: start: 20231202, end: 20231206
  9. CHONDROITIN PLUS GLUCOSAMIN [Concomitant]
     Dosage: UNK

REACTIONS (2)
  - COVID-19 [Recovered/Resolved]
  - Disease recurrence [Recovered/Resolved]

NARRATIVE: CASE EVENT DATE: 20231210
